FAERS Safety Report 18101702 (Version 1)
Quarter: 2020Q3

REPORT INFORMATION
  Report Type: Other
  Country: GB (occurrence: GB)
  Receive Date: 20200802
  Receipt Date: 20200802
  Transmission Date: 20201103
  Serious: Yes (Disabling)
  Sender: FDA-Public Use
  Company Number: GB-LUPIN PHARMACEUTICALS INC.-2020-03912

PATIENT
  Age: 24 Year
  Sex: Male
  Weight: 82.55 kg

DRUGS (1)
  1. SERTRALINE [Suspect]
     Active Substance: SERTRALINE HYDROCHLORIDE
     Indication: ANXIETY
     Dosage: 50 MILLIGRAM
     Route: 048
     Dates: start: 20200625, end: 20200706

REACTIONS (7)
  - Dizziness [Unknown]
  - Dry mouth [Recovered/Resolved with Sequelae]
  - Autoscopy [Unknown]
  - Depersonalisation/derealisation disorder [Not Recovered/Not Resolved]
  - Insomnia [Recovering/Resolving]
  - Diarrhoea [Recovered/Resolved]
  - Fatigue [Recovered/Resolved with Sequelae]
